FAERS Safety Report 12222315 (Version 1)
Quarter: 2016Q1

REPORT INFORMATION
  Report Type: Spontaneous
  Country: JP (occurrence: JP)
  Receive Date: 20160330
  Receipt Date: 20160330
  Transmission Date: 20160526
  Serious: Yes (Death)
  Sender: FDA-Public Use
  Company Number: JP-MALLINCKRODT-T201601138

PATIENT
  Age: 59 Year
  Sex: Male

DRUGS (7)
  1. ZYPREXA [Concomitant]
     Active Substance: OLANZAPINE
     Dosage: 2.5MG
     Route: 048
     Dates: start: 20151107
  2. ROPION [Concomitant]
     Active Substance: FLURBIPROFEN AXETIL
     Dosage: 150MG
     Route: 051
     Dates: start: 20151106
  3. OXIFAST [Concomitant]
     Active Substance: OXYCODONE
     Indication: ANALGESIC THERAPY
     Dosage: 20MG PRN
     Route: 051
     Dates: start: 20151106, end: 20151109
  4. AMITIZA [Concomitant]
     Active Substance: LUBIPROSTONE
     Dosage: 48?G
     Route: 048
     Dates: end: 20151109
  5. SOLDEM 3A [Concomitant]
     Active Substance: CARBOHYDRATES\POTASSIUM CHLORIDE\SODIUM CHLORIDE\SODIUM LACTATE
     Dosage: 500 ML
     Route: 051
     Dates: start: 20151106
  6. GASTER [Concomitant]
     Active Substance: FAMOTIDINE
     Dosage: 40 MG
     Route: 051
     Dates: start: 20151106
  7. METHADONE [Suspect]
     Active Substance: METHADONE HYDROCHLORIDE
     Indication: CANCER PAIN
     Dosage: 5MG (15MG TOTAL DAILY DOSE)
     Route: 048
     Dates: start: 20151107, end: 20151109

REACTIONS (1)
  - Gastric cancer [Fatal]

NARRATIVE: CASE EVENT DATE: 20151113
